FAERS Safety Report 17016172 (Version 1)
Quarter: 2019Q4

REPORT INFORMATION
  Report Type: Report from Study
  Country: CA (occurrence: CA)
  Receive Date: 20191111
  Receipt Date: 20191111
  Transmission Date: 20200122
  Serious: Yes (Other)
  Sender: FDA-Public Use
  Company Number: CA-PFIZER INC-2019481671

PATIENT
  Age: 35 Year
  Sex: Male

DRUGS (14)
  1. DEXAMETHASONE. [Concomitant]
     Active Substance: DEXAMETHASONE
     Dosage: UNK
  2. PROCHLORPERAZINE. [Concomitant]
     Active Substance: PROCHLORPERAZINE
     Dosage: UNK
  3. FUROSEMIDE. [Concomitant]
     Active Substance: FUROSEMIDE
     Dosage: UNK
  4. VENTOLIN [Concomitant]
     Active Substance: ALBUTEROL SULFATE
     Dosage: UNK
  5. TRAMADOL. [Concomitant]
     Active Substance: TRAMADOL
     Dosage: UNK
  6. FLUOROURACIL. [Suspect]
     Active Substance: FLUOROURACIL
     Indication: APPENDIX CANCER
     Dosage: UNK
     Route: 042
  7. BUDESONIDE/FORMOTEROL FUMARATE [Concomitant]
     Dosage: UNK
  8. ONDANSETRON [Concomitant]
     Active Substance: ONDANSETRON
     Dosage: UNK
  9. SENOKOT [Concomitant]
     Active Substance: SENNOSIDES
     Dosage: UNK
  10. AVASTIN [Suspect]
     Active Substance: BEVACIZUMAB
     Indication: APPENDIX CANCER
     Dosage: 700 MG, UNK(1 EVERY 2 WEEK(S))
     Route: 042
  11. OXALIPLATIN. [Suspect]
     Active Substance: OXALIPLATIN
     Indication: APPENDIX CANCER
     Dosage: UNK
     Route: 042
  12. CALCIUM FOLINATE [Suspect]
     Active Substance: LEUCOVORIN CALCIUM
     Indication: APPENDIX CANCER
     Dosage: UNK
     Route: 042
  13. AVASTIN [Suspect]
     Active Substance: BEVACIZUMAB
     Dosage: 600 MG, UNK(1 EVERY 2 WEEK(S))
     Route: 042
  14. PANTOPRAZOLE [Concomitant]
     Active Substance: PANTOPRAZOLE
     Dosage: UNK

REACTIONS (11)
  - Haematocrit decreased [Not Recovered/Not Resolved]
  - Red cell distribution width increased [Not Recovered/Not Resolved]
  - Ulcer [Not Recovered/Not Resolved]
  - Haemoglobin decreased [Not Recovered/Not Resolved]
  - White blood cell count increased [Not Recovered/Not Resolved]
  - Bacterial infection [Not Recovered/Not Resolved]
  - Infusion related reaction [Not Recovered/Not Resolved]
  - Mean cell haemoglobin concentration decreased [Not Recovered/Not Resolved]
  - Neutrophil count increased [Not Recovered/Not Resolved]
  - Mean cell haemoglobin decreased [Not Recovered/Not Resolved]
  - Red blood cell count decreased [Not Recovered/Not Resolved]
